FAERS Safety Report 24764660 (Version 1)
Quarter: 2024Q4

REPORT INFORMATION
  Report Type: Spontaneous
  Country: GB (occurrence: GB)
  Receive Date: 20241223
  Receipt Date: 20241223
  Transmission Date: 20250114
  Serious: Yes (Other)
  Sender: CIPLA
  Company Number: GB-MHRA-MIDB-9378557c-8316-4965-b5cb-bcbb89f391d6

PATIENT

DRUGS (4)
  1. RIVAROXABAN [Suspect]
     Active Substance: RIVAROXABAN
     Indication: Thrombosis prophylaxis
     Dosage: 10 MILLIGRAM, QD (TAKE ONCE DAILY WITH LUNCH) (TABLET)
     Route: 048
     Dates: start: 20241123, end: 20241205
  2. METHYLPHENIDATE [Concomitant]
     Active Substance: METHYLPHENIDATE
     Indication: Attention deficit hyperactivity disorder
     Dosage: 18 MILLIGRAM (54MG ON SCHOOL DAYS AND 45MG ON SCHOOL HOLIDAYS)
     Route: 048
  3. METHYLPHENIDATE [Concomitant]
     Active Substance: METHYLPHENIDATE
     Dosage: 27 MILLIGRAM (54MG ON SCHOOL DAYS AND 45MG ON SCHOOL HOLIDAYS)
     Route: 048
  4. METHYLPHENIDATE [Concomitant]
     Active Substance: METHYLPHENIDATE
     Dosage: 54 MILLIGRAM (54MG ON SCHOOL DAYS AND 45MG ON SCHOOL HOLIDAYS)
     Route: 048

REACTIONS (5)
  - Delirium [Unknown]
  - Mental disorder [Unknown]
  - Psychomotor hyperactivity [Unknown]
  - Abnormal behaviour [Unknown]
  - Insomnia [Unknown]

NARRATIVE: CASE EVENT DATE: 20241123
